FAERS Safety Report 17745503 (Version 12)
Quarter: 2021Q3

REPORT INFORMATION
  Report Type: Report from Study
  Country: CA (occurrence: CA)
  Receive Date: 20200505
  Receipt Date: 20210714
  Transmission Date: 20211014
  Serious: Yes (Other)
  Sender: FDA-Public Use
  Company Number: PHHY2018CA055025

PATIENT
  Age: 85 Year
  Sex: Male

DRUGS (5)
  1. ELIGARD [Concomitant]
     Active Substance: LEUPROLIDE ACETATE
     Indication: PRODUCT USED FOR UNKNOWN INDICATION
     Dosage: UNK (12+)
     Route: 065
  2. SANDOSTATIN LAR DEPOT [Suspect]
     Active Substance: OCTREOTIDE ACETATE
     Indication: CARCINOID TUMOUR
     Dosage: 30 MG, QMO
     Route: 030
     Dates: start: 20170330
  3. DAROLUTAMIDE. [Concomitant]
     Active Substance: DAROLUTAMIDE
     Indication: PRODUCT USED FOR UNKNOWN INDICATION
     Dosage: 300 MG, BID (2 TABS)
     Route: 065
     Dates: start: 20210225
  4. SANDOSTATIN LAR DEPOT [Suspect]
     Active Substance: OCTREOTIDE ACETATE
     Indication: PROSTATE CANCER
  5. SANDOSTATIN LAR DEPOT [Suspect]
     Active Substance: OCTREOTIDE ACETATE

REACTIONS (21)
  - Heart rate irregular [Unknown]
  - Blood urine present [Unknown]
  - Product use in unapproved indication [Unknown]
  - Atrial fibrillation [Unknown]
  - Pyrexia [Unknown]
  - Macular degeneration [Unknown]
  - Visual field defect [Unknown]
  - Metastases to spine [Unknown]
  - Intestinal dilatation [Unknown]
  - Cystitis [Unknown]
  - Metastases to liver [Unknown]
  - Fall [Recovered/Resolved]
  - Back pain [Recovered/Resolved]
  - Prostate cancer recurrent [Unknown]
  - Intraocular pressure increased [Recovering/Resolving]
  - Metastases to lung [Unknown]
  - Glaucoma [Unknown]
  - Blood pressure systolic increased [Unknown]
  - Dysuria [Unknown]
  - Epistaxis [Unknown]
  - Heart rate decreased [Unknown]

NARRATIVE: CASE EVENT DATE: 201804
